FAERS Safety Report 8220685-1 (Version None)
Quarter: 2012Q1

REPORT INFORMATION
  Report Type: 
  Country: None (occurrence: None)
  Receive Date: 20120320
  Receipt Date: 20120307
  Transmission Date: 20120608
  Serious: Yes (Other)
  Sender: FDA-Public Use
  Company Number: AT-ELI_LILLY_AND_COMPANY-AT201203002946

PATIENT
  Age: 60 Year
  Sex: Male

DRUGS (2)
  1. RITALIN [Concomitant]
  2. STRATTERA [Suspect]
     Indication: ATTENTION DEFICIT/HYPERACTIVITY DISORDER
     Dosage: 80 MG, UNK

REACTIONS (3)
  - PROSTATITIS [None]
  - PYREXIA [None]
  - INFLUENZA LIKE ILLNESS [None]
